FAERS Safety Report 5734260-1 (Version None)
Quarter: 2008Q2

REPORT INFORMATION
  Report Type: 
  Country: None (occurrence: None)
  Receive Date: 20080512
  Receipt Date: 20080501
  Transmission Date: 20081010
  Serious: Yes (Hospitalization, Other)
  Sender: FDA-Public Use
  Company Number: US-JNJFOC-20080500762

PATIENT
  Sex: Female
  Weight: 63.5 kg

DRUGS (7)
  1. DURAGESIC-100 [Suspect]
     Route: 062
  2. DURAGESIC-100 [Suspect]
     Indication: ARTHRITIS
     Route: 062
  3. DIOVAN [Concomitant]
     Indication: BLOOD PRESSURE
     Route: 048
  4. HYDROCODONE BITARTRATE [Concomitant]
     Indication: PAIN
     Dosage: 5/500MG, ONE TO ONE AND A HALF TABLETS, FOUR TIMES A DAY
     Route: 048
  5. XANAX [Concomitant]
     Indication: PANIC ATTACK
     Route: 048
  6. ZANTAC [Concomitant]
     Indication: GASTRIC DISORDER
     Route: 048
  7. CHANTIX [Concomitant]
     Indication: SMOKING CESSATION THERAPY
     Route: 048

REACTIONS (8)
  - INFLUENZA [None]
  - MENOPAUSE [None]
  - MULTIPLE ALLERGIES [None]
  - OSTEOPOROSIS [None]
  - PHARYNGITIS STREPTOCOCCAL [None]
  - PNEUMONIA [None]
  - VAGINAL HAEMORRHAGE [None]
  - WRONG TECHNIQUE IN DRUG USAGE PROCESS [None]
